FAERS Safety Report 4504582-0 (Version None)
Quarter: 2004Q4

REPORT INFORMATION
  Report Type: 
  Country: None (occurrence: None)
  Receive Date: 20041116
  Receipt Date: 20041102
  Transmission Date: 20050328
  Serious: Yes (Other)
  Sender: FDA-Public Use
  Company Number: 2004-UK-01130UK

PATIENT
  Age: 72 Year
  Sex: Female

DRUGS (13)
  1. TIOTROPIUM (00015/0190/A) (TIOTROPIUM BROMIDE) (NR) [Suspect]
     Indication: CHRONIC OBSTRUCTIVE AIRWAYS DISEASE
     Dosage: IH
     Route: 055
     Dates: start: 20041014, end: 20041016
  2. DICLOFENAC SODIUM (NR) [Concomitant]
  3. CO-PROXAMOL (APOREX) (NR) [Concomitant]
  4. LANSOPRAZOLE (NR) [Concomitant]
  5. MESALAZINE (MESALAZINE) (NR) [Concomitant]
  6. FERROUS GLUCONATE (NR) [Concomitant]
  7. ASPIRIN [Concomitant]
  8. ADIZEM-SR(NR) [Concomitant]
  9. SALBUTAMOL (SALBUTAMOL) (NR) [Concomitant]
  10. PREDNISOLONE (NR) [Concomitant]
  11. CO-AMILOFRUSE (FRUMIL) (NR) [Concomitant]
  12. SERETIDE EVOHALER (SERETIDE MITE) (NR) [Concomitant]
  13. CALCICHEW DC (LEKOVIT CA) (NR) [Concomitant]

REACTIONS (3)
  - DYSPHAGIA [None]
  - ORAL PAIN [None]
  - SWOLLEN TONGUE [None]
